FAERS Safety Report 4461201-X (Version None)
Quarter: 2004Q3

REPORT INFORMATION
  Report Type: 
  Country: None (occurrence: None)
  Receive Date: 20040923
  Receipt Date: 20040910
  Transmission Date: 20050211
  Serious: Yes (Other)
  Sender: FDA-Public Use
  Company Number: 2004065164

PATIENT
  Age: 7 Year
  Sex: Female

DRUGS (1)
  1. ZARONTIN SYRUP [Suspect]
     Indication: EPILEPSY
     Dosage: 1.5 TSP (0.5 TSP, 3 IN 1 D), ORAL
     Route: 048

REACTIONS (1)
  - CUSHING'S SYNDROME [None]
